FAERS Safety Report 16574654 (Version 1)
Quarter: 2019Q3

REPORT INFORMATION
  Report Type: Spontaneous
  Country: US (occurrence: US)
  Receive Date: 20190715
  Receipt Date: 20190715
  Transmission Date: 20191004
  Serious: Yes (Other)
  Sender: FDA-Public Use
  Company Number: US-NOVOPROD-646669

PATIENT
  Sex: Female

DRUGS (1)
  1. OZEMPIC [Suspect]
     Active Substance: SEMAGLUTIDE
     Indication: TYPE 1 DIABETES MELLITUS
     Dosage: UNK
     Route: 065

REACTIONS (3)
  - Blood glucose increased [Recovered/Resolved]
  - Device malfunction [Unknown]
  - Product use in unapproved indication [Unknown]
